FAERS Safety Report 9424215 (Version 1)
Quarter: 2013Q3

REPORT INFORMATION
  Report Type: Report from Study
  Country: GB (occurrence: GB)
  Receive Date: 20130729
  Receipt Date: 20130729
  Transmission Date: 20140515
  Serious: Yes (Hospitalization)
  Sender: FDA-Public Use
  Company Number: GB-ROCHE-1253145

PATIENT
  Age: 74 Year
  Sex: Male
  Weight: 74.7 kg

DRUGS (4)
  1. BEVACIZUMAB [Suspect]
     Indication: GASTRIC CANCER
     Dosage: MOST RECENT DOSE 575MG, DATE OF LAST DOSE 13/MAY/2013
     Route: 042
     Dates: start: 20130330
  2. CAPECITABINE [Suspect]
     Indication: GASTRIC CANCER
     Dosage: LAST DOSE 52500MG, DATE OF LAST DOSE 13/MAY/2013
     Route: 048
     Dates: start: 20130330
  3. EPIRUBICIN [Suspect]
     Indication: GASTRIC CANCER
     Dosage: DATE OF LAST DOSE PRIOR TO SAE 13/MAY/2013, 90MG
     Route: 042
     Dates: start: 20130330
  4. CISPLATIN [Suspect]
     Indication: GASTRIC CANCER
     Dosage: DATE OF LAST DOSE PRIOR TO SAE 13/MAY/2013, 112MG
     Route: 042
     Dates: start: 20130330

REACTIONS (1)
  - Local swelling [Recovered/Resolved]
